FAERS Safety Report 5330116-7 (Version None)
Quarter: 2007Q2

REPORT INFORMATION
  Report Type: 
  Country: None (occurrence: None)
  Receive Date: 20070521
  Receipt Date: 20070510
  Transmission Date: 20071010
  Serious: Yes (Hospitalization)
  Sender: FDA-Public Use
  Company Number: FR-JNJFOC-20070502890

PATIENT
  Age: 57 Year
  Sex: Female
  Weight: 87 kg

DRUGS (10)
  1. IMODIUM [Suspect]
     Indication: DRUG USE FOR UNKNOWN INDICATION
     Route: 048
  2. GLUCOPHAGE [Suspect]
     Indication: DIABETES MELLITUS NON-INSULIN-DEPENDENT
     Route: 048
  3. LYTOS [Suspect]
     Indication: DRUG USE FOR UNKNOWN INDICATION
     Route: 065
  4. ALIMTA [Suspect]
     Route: 065
  5. ALIMTA [Suspect]
     Indication: DRUG USE FOR UNKNOWN INDICATION
     Route: 065
  6. TARCEVA [Suspect]
     Indication: LUNG ADENOCARCINOMA
     Route: 065
  7. MICARDIS [Suspect]
     Indication: HYPERTENSION
     Route: 065
  8. FOLIC ACID [Concomitant]
     Indication: VITAMIN SUPPLEMENTATION
     Route: 065
  9. VITAMIN B-12 [Concomitant]
     Indication: VITAMIN SUPPLEMENTATION
     Route: 065
  10. ALUMINUM HYDROXIDE AND MAGNESIUM TRISILICATE [Concomitant]
     Route: 065

REACTIONS (2)
  - PANCYTOPENIA [None]
  - RENAL FAILURE ACUTE [None]
